FAERS Safety Report 16141503 (Version 1)
Quarter: 2019Q2

REPORT INFORMATION
  Report Type: Spontaneous
  Country: US (occurrence: US)
  Receive Date: 20190331
  Receipt Date: 20190331
  Transmission Date: 20190711
  Serious: Yes (Life-Threatening, Other)
  Sender: FDA-Public Use
  Company Number: None

PATIENT
  Age: 64 Year
  Sex: Female
  Weight: 67.5 kg

DRUGS (4)
  1. PROBIOTIC [Concomitant]
     Active Substance: PROBIOTICS NOS
  2. BENAKAR [Concomitant]
  3. MULTIVITAMIN [Concomitant]
     Active Substance: VITAMINS
  4. DOXYCYCLINE MONO [Suspect]
     Active Substance: DOXYCYCLINE
     Indication: COUGH
     Dosage: ?          QUANTITY:14 CAPSULE(S);?
     Route: 048
     Dates: start: 20190325, end: 20190330

REACTIONS (8)
  - Vomiting [None]
  - Presyncope [None]
  - Blood pressure increased [None]
  - Nausea [None]
  - Dizziness [None]
  - Tinnitus [None]
  - Vision blurred [None]
  - Head discomfort [None]

NARRATIVE: CASE EVENT DATE: 20190330
